FAERS Safety Report 16092584 (Version 1)
Quarter: 2019Q1

REPORT INFORMATION
  Report Type: Spontaneous
  Country: GB (occurrence: GB)
  Receive Date: 20190319
  Receipt Date: 20190319
  Transmission Date: 20190418
  Serious: Yes (Other)
  Sender: FDA-Public Use
  Company Number: PHHY2019GB055804

PATIENT
  Age: 44 Year
  Sex: Female
  Weight: 57 kg

DRUGS (2)
  1. METHOTREXATE. [Suspect]
     Active Substance: METHOTREXATE
     Indication: RHEUMATOID ARTHRITIS
     Dosage: 15 MG, QW
     Route: 058
     Dates: start: 20181128, end: 20181220
  2. FOLIC ACID. [Concomitant]
     Active Substance: FOLIC ACID
     Indication: PRODUCT USED FOR UNKNOWN INDICATION
     Route: 065

REACTIONS (13)
  - Polymorphic light eruption [Unknown]
  - Hyperhidrosis [Recovered/Resolved]
  - White blood cell count decreased [Unknown]
  - Neutrophil count decreased [Unknown]
  - Lymphocyte count decreased [Unknown]
  - Lethargy [Recovered/Resolved]
  - Epistaxis [Recovering/Resolving]
  - Affect lability [Recovered/Resolved]
  - Feeling abnormal [Recovered/Resolved]
  - Mean cell volume increased [Unknown]
  - Alopecia [Recovered/Resolved with Sequelae]
  - Photosensitivity reaction [Not Recovered/Not Resolved]
  - Irritability [Recovered/Resolved]

NARRATIVE: CASE EVENT DATE: 20181201
